FAERS Safety Report 8445307 (Version 6)
Quarter: 2012Q4

REPORT INFORMATION
  Report Type: Report from Study
  Country: IN (occurrence: IN)
  Receive Date: 20120307
  Receipt Date: 20121010
  Transmission Date: 20130627
  Serious: Yes (Hospitalization)
  Sender: FDA-Public Use
  Company Number: IN-SANOFI-AVENTIS-2012SA013932

PATIENT
  Age: 46 Year
  Sex: Male
  Weight: 65 kg

DRUGS (7)
  1. DOCETAXEL [Suspect]
     Indication: NON-SMALL CELL LUNG CANCER STAGE IV
     Dosage: every 3 weeks (day 1 of 21 day cycle)
     Route: 041
     Dates: start: 20120209, end: 20120209
  2. BLINDED THERAPY [Suspect]
     Indication: NON-SMALL CELL LUNG CANCER STAGE IV
     Dosage: every 3 weeks (day 1 of 21 day cycle)
     Route: 042
     Dates: start: 20120209, end: 20120209
  3. DEXAMETHASONE [Concomitant]
     Indication: PREMEDICATION
     Dates: start: 20120207, end: 20120210
  4. GRANISETRON [Concomitant]
     Indication: PREMEDICATION
     Dates: start: 20120209, end: 20120209
  5. RANITIDINE [Concomitant]
     Indication: PREMEDICATION
     Dates: start: 20120209, end: 20120209
  6. CURIDOL [Concomitant]
     Route: 065
     Dates: start: 20120214, end: 20120217
  7. FLUCON [Concomitant]
     Dates: start: 20120216, end: 20120221

REACTIONS (2)
  - Hyponatraemia [Recovered/Resolved]
  - Dyspnoea [Not Recovered/Not Resolved]
